FAERS Safety Report 11389182 (Version 1)
Quarter: 2015Q3

REPORT INFORMATION
  Report Type: Spontaneous
  Country: PT (occurrence: PT)
  Receive Date: 20150817
  Receipt Date: 20150817
  Transmission Date: 20151125
  Serious: Yes (Other)
  Sender: FDA-Public Use
  Company Number: PT-MYLANLABS-2015M1026737

PATIENT

DRUGS (5)
  1. LOSARTAN HCT RATIOPHARM [Concomitant]
     Indication: HYPERTENSION
     Dosage: UNK
  2. OMEPRAZOL MYLAN 20 MG [Suspect]
     Active Substance: OMEPRAZOLE
     Indication: HERNIA
     Dosage: 20 MG, UNK
     Route: 048
  3. OMEPRAZOL MYLAN 20 MG [Suspect]
     Active Substance: OMEPRAZOLE
     Indication: GASTROOESOPHAGEAL REFLUX DISEASE
  4. SIMVASTATIN. [Concomitant]
     Active Substance: SIMVASTATIN
     Indication: BLOOD CHOLESTEROL INCREASED
     Dosage: 2 MG, UNK
     Route: 065
  5. VOLTAREN [Concomitant]
     Active Substance: DICLOFENAC SODIUM
     Indication: PAIN
     Dosage: 50 MG, PRN

REACTIONS (4)
  - Drug ineffective [Not Recovered/Not Resolved]
  - Dry mouth [Not Recovered/Not Resolved]
  - Throat irritation [Not Recovered/Not Resolved]
  - Dyspepsia [Not Recovered/Not Resolved]
